FAERS Safety Report 21692997 (Version 2)
Quarter: 2022Q4

REPORT INFORMATION
  Report Type: Spontaneous
  Country: US (occurrence: US)
  Receive Date: 20221207
  Receipt Date: 20221227
  Transmission Date: 20230112
  Serious: Yes (Other)
  Sender: FDA-Public Use
  Company Number: US-002147023-NVSC2022US281084

PATIENT
  Sex: Female
  Weight: 19 kg

DRUGS (1)
  1. KYMRIAH [Suspect]
     Active Substance: TISAGENLECLEUCEL
     Indication: Acute lymphocytic leukaemia
     Dosage: 2.7E6 CAR POSITIVE VIABLE T CELLS, ONCE/SINGLE
     Route: 042
     Dates: start: 20221026

REACTIONS (2)
  - Post-depletion B-cell recovery [Unknown]
  - Minimal residual disease [Not Recovered/Not Resolved]
